FAERS Safety Report 5608020-6 (Version None)
Quarter: 2008Q1

REPORT INFORMATION
  Report Type: 
  Country: None (occurrence: None)
  Receive Date: 20080128
  Receipt Date: 20080128
  Transmission Date: 20080703
  Serious: Yes (Life-Threatening)
  Sender: FDA-Public Use
  Company Number: None

PATIENT
  Age: 69 Year
  Sex: Female
  Weight: 67.1324 kg

DRUGS (1)
  1. SOTRADECOL [Suspect]
     Indication: SURGERY
     Dates: start: 20071112, end: 20071112

REACTIONS (9)
  - CARDIAC ARREST [None]
  - EAR DISCOMFORT [None]
  - EYE IRRITATION [None]
  - HYPERTENSION [None]
  - LOSS OF CONSCIOUSNESS [None]
  - ORAL DISCOMFORT [None]
  - PROCEDURAL COMPLICATION [None]
  - SHOCK [None]
  - TREMOR [None]
